FAERS Safety Report 22140295 (Version 1)
Quarter: 2023Q1

REPORT INFORMATION
  Report Type: Spontaneous
  Country: US (occurrence: None)
  Receive Date: 20230323
  Receipt Date: 20230323
  Transmission Date: 20230417
  Serious: No
  Sender: FDA-Public Use
  Company Number: None

PATIENT
  Sex: Female

DRUGS (1)
  1. ENTYVIO [Suspect]
     Active Substance: VEDOLIZUMAB
     Indication: Colitis ulcerative
     Dosage: 300MG EVERY 8 WEEKS   INTRAVENOUS
     Route: 042
     Dates: start: 20221003

REACTIONS (2)
  - Drug ineffective [None]
  - Blood iron decreased [None]
